FAERS Safety Report 4842667-X (Version None)
Quarter: 2005Q4

REPORT INFORMATION
  Report Type: 
  Country: None (occurrence: None)
  Receive Date: 20051201
  Receipt Date: 20051116
  Transmission Date: 20060501
  Serious: Yes (Other)
  Sender: FDA-Public Use
  Company Number: TH-BOEHRINGER INGELHEIM PHARMACEUTICALS, INC.-2005-DE-04997GD

PATIENT

DRUGS (1)
  1. TRIOMUNE [Suspect]
     Indication: HIV INFECTION
     Dosage: DOSAGE OF GPO-VIR WAS BASED UPON A NEVIRAPINE DOSAGE OF 240 - 400 MG/ME2
     Route: 048

REACTIONS (2)
  - DRUG INEFFECTIVE [None]
  - VIRAL MUTATION IDENTIFIED [None]
